FAERS Safety Report 18415976 (Version 1)
Quarter: 2020Q4

REPORT INFORMATION
  Report Type: Report from Study
  Country: US (occurrence: US)
  Receive Date: 20201022
  Receipt Date: 20201022
  Transmission Date: 20210114
  Serious: Yes (Death)
  Sender: FDA-Public Use
  Company Number: US-CHIESI USA, INC.-US-2020CHI000622

PATIENT

DRUGS (4)
  1. HEPARIN [Concomitant]
     Active Substance: HEPARIN SODIUM
     Indication: PRODUCT USED FOR UNKNOWN INDICATION
     Dosage: UNK
  2. ASPIRIN                            /00002701/ [Concomitant]
     Active Substance: ASPIRIN
     Indication: PRODUCT USED FOR UNKNOWN INDICATION
     Dosage: UNK
  3. TICAGRELOR. [Concomitant]
     Active Substance: TICAGRELOR
     Indication: PRODUCT USED FOR UNKNOWN INDICATION
     Dosage: UNK
  4. KENGREAL [Suspect]
     Active Substance: CANGRELOR
     Indication: PERCUTANEOUS CORONARY INTERVENTION
     Dosage: UNK
     Route: 065

REACTIONS (4)
  - Condition aggravated [Fatal]
  - Intestinal ischaemia [Fatal]
  - Shock [Fatal]
  - Acidosis [Fatal]
